FAERS Safety Report 6093019-9 (Version None)
Quarter: 2009Q1

REPORT INFORMATION
  Report Type: 
  Country: None (occurrence: None)
  Receive Date: 20090224
  Receipt Date: 20090211
  Transmission Date: 20090719
  Serious: Yes (Other)
  Sender: FDA-Public Use
  Company Number: 231598K09USA

PATIENT
  Age: 41 Year
  Sex: Male
  Weight: 93 kg

DRUGS (5)
  1. REBIF [Suspect]
     Indication: MULTIPLE SCLEROSIS
     Dosage: 44 MCG, 3 IN 1 WEEKS, SUBCUTANEOUS
     Dates: start: 20080408
  2. WELLBUTRIN [Concomitant]
  3. ABILIFY [Concomitant]
  4. AMBIEN [Concomitant]
  5. ATIVAN [Concomitant]

REACTIONS (1)
  - CHOLELITHIASIS [None]
